FAERS Safety Report 16944437 (Version 2)
Quarter: 2019Q4

REPORT INFORMATION
  Report Type: Report from Study
  Country: ZA (occurrence: ZA)
  Receive Date: 20191022
  Receipt Date: 20191031
  Transmission Date: 20200122
  Serious: Yes (Other)
  Sender: FDA-Public Use
  Company Number: PHHY2019ZA204681

PATIENT
  Sex: Male

DRUGS (4)
  1. COSENTYX [Suspect]
     Active Substance: SECUKINUMAB
     Indication: PRODUCT USED FOR UNKNOWN INDICATION
     Dosage: 150 MG, QW
     Route: 058
     Dates: start: 20190828
  2. COSENTYX [Suspect]
     Active Substance: SECUKINUMAB
     Dosage: 150 MG, QW
     Route: 058
  3. COSENTYX [Suspect]
     Active Substance: SECUKINUMAB
     Dosage: 150 MG (PREFILLED SYRINGE)
     Route: 058
     Dates: start: 20190925
  4. COSENTYX [Suspect]
     Active Substance: SECUKINUMAB
     Dosage: 150 MG, QW
     Route: 058

REACTIONS (8)
  - Type 2 diabetes mellitus [Unknown]
  - Pain in extremity [Unknown]
  - Pain [Unknown]
  - Wound [Recovering/Resolving]
  - Flushing [Unknown]
  - Nasal congestion [Unknown]
  - Back pain [Unknown]
  - Concomitant disease aggravated [Unknown]
